FAERS Safety Report 12563038 (Version 4)
Quarter: 2016Q4

REPORT INFORMATION
  Report Type: Report from Study
  Country: US (occurrence: US)
  Receive Date: 20160715
  Receipt Date: 20161221
  Transmission Date: 20170207
  Serious: Yes (Death, Hospitalization, Other)
  Sender: FDA-Public Use
  Company Number: US-GILEAD-2016-0223159

PATIENT
  Age: 20 Year
  Sex: Male

DRUGS (21)
  1. SODIUM CHLORIDE. [Concomitant]
     Active Substance: SODIUM CHLORIDE
  2. VORICONAZOLE. [Concomitant]
     Active Substance: VORICONAZOLE
  3. AZITHROMYCIN ANHYDROUS. [Concomitant]
     Active Substance: AZITHROMYCIN ANHYDROUS
  4. COLISTIN [Concomitant]
     Active Substance: COLISTIN
  5. AZTREONAM LYSINE [Suspect]
     Active Substance: AZTREONAM LYSINE
     Indication: CYSTIC FIBROSIS
     Dosage: 75 MG, UNK
     Route: 055
     Dates: start: 20150515, end: 20160602
  6. STERILE WATER [Concomitant]
     Active Substance: WATER
  7. TOBI [Concomitant]
     Active Substance: TOBRAMYCIN
  8. FERROUS SULFATE. [Concomitant]
     Active Substance: FERROUS SULFATE
  9. MEPHYTON [Concomitant]
     Active Substance: PHYTONADIONE
  10. AQUADEKS                           /07679501/ [Concomitant]
     Active Substance: MINERALS\VITAMINS
  11. CYPROHEPTADINE. [Concomitant]
     Active Substance: CYPROHEPTADINE
  12. LANSOPRAZOLE. [Concomitant]
     Active Substance: LANSOPRAZOLE
  13. OLANZAPINE. [Concomitant]
     Active Substance: OLANZAPINE
  14. AZTREONAM LYSINE [Suspect]
     Active Substance: AZTREONAM LYSINE
     Indication: PSEUDOMONAS INFECTION
  15. SERTRALINE [Concomitant]
     Active Substance: SERTRALINE HYDROCHLORIDE
  16. PULMOZYME [Concomitant]
     Active Substance: DORNASE ALFA
  17. POLYETHYLENE GLYCOL 3350 GRX [Concomitant]
  18. ABILIFY [Concomitant]
     Active Substance: ARIPIPRAZOLE
  19. ADVAIR HFA [Concomitant]
     Active Substance: FLUTICASONE PROPIONATE\SALMETEROL XINAFOATE
  20. CREON [Concomitant]
     Active Substance: PANCRELIPASE AMYLASE\PANCRELIPASE LIPASE\PANCRELIPASE PROTEASE
  21. LIDOCAINE AND PRILOCAINE [Concomitant]
     Active Substance: LIDOCAINE\PRILOCAINE

REACTIONS (2)
  - Death [Fatal]
  - Haemorrhage [Unknown]

NARRATIVE: CASE EVENT DATE: 20160714
